FAERS Safety Report 9484392 (Version 1)
Quarter: 2013Q3

REPORT INFORMATION
  Report Type: Spontaneous
  Country: US (occurrence: US)
  Receive Date: 20130828
  Receipt Date: 20130828
  Transmission Date: 20140515
  Serious: Yes (Hospitalization, Other)
  Sender: FDA-Public Use
  Company Number: US-AMGEN-KDL418536

PATIENT
  Age: 52 Year
  Sex: Female

DRUGS (4)
  1. ENBREL [Suspect]
     Indication: RHEUMATOID ARTHRITIS
     Dosage: 50 MG, QWK
     Route: 058
  2. LEFLUNOMIDE [Concomitant]
     Dosage: UNK UNK, UNK
  3. HYDROXYCHLOROQUINE SULFATE [Concomitant]
     Dosage: UNK UNK, UNK
  4. METHOTREXATE [Concomitant]

REACTIONS (11)
  - Pleural effusion [Unknown]
  - Pericardial effusion [Unknown]
  - Pulmonary oedema [Unknown]
  - Pulmonary mass [Unknown]
  - Malignant melanoma in situ [Unknown]
  - Pneumonia [Unknown]
  - Rheumatoid arthritis [Unknown]
  - Joint lock [Unknown]
  - Joint range of motion decreased [Unknown]
  - Precancerous skin lesion [Unknown]
  - Rosacea [Unknown]
